FAERS Safety Report 12831992 (Version 1)
Quarter: 2016Q4

REPORT INFORMATION
  Report Type: Spontaneous
  Country: US (occurrence: US)
  Receive Date: 20161010
  Receipt Date: 20161010
  Transmission Date: 20170207
  Serious: No
  Sender: FDA-Public Use
  Company Number: US-BIOGEN-2016BI00299296

PATIENT
  Sex: Female

DRUGS (1)
  1. TECFIDERA [Suspect]
     Active Substance: DIMETHYL FUMARATE
     Indication: MULTIPLE SCLEROSIS
     Route: 065
     Dates: start: 20160919

REACTIONS (6)
  - Muscle spasms [Unknown]
  - Balance disorder [Unknown]
  - Visual impairment [Unknown]
  - Patient dissatisfaction with treatment [Unknown]
  - General symptom [Unknown]
  - Hypersensitivity [Unknown]
